FAERS Safety Report 4443200-7 (Version None)
Quarter: 2004Q3

REPORT INFORMATION
  Report Type: 
  Country: None (occurrence: None)
  Receive Date: 20040907
  Receipt Date: 20040907
  Transmission Date: 20050211
  Serious: Yes (Other)
  Sender: FDA-Public Use
  Company Number: None

PATIENT
  Age: 62 Year
  Sex: Female
  Weight: 58.9676 kg

DRUGS (1)
  1. LEVAQUIN  500 MG  ORTHO-MCNEIL PHARMACEUTICALS, INC. [Suspect]
     Indication: SINUSITIS
     Dosage: 1 TABLET   DAILY   ORAL
     Route: 048
     Dates: start: 20040823, end: 20040901

REACTIONS (4)
  - ARTHRALGIA [None]
  - DIFFICULTY IN WALKING [None]
  - MOBILITY DECREASED [None]
  - MYALGIA [None]
